FAERS Safety Report 20056506 (Version 1)
Quarter: 2021Q4

REPORT INFORMATION
  Report Type: Spontaneous
  Country: CN (occurrence: CN)
  Receive Date: 20211111
  Receipt Date: 20211111
  Transmission Date: 20220303
  Serious: Yes (Hospitalization, Other)
  Sender: FDA-Public Use
  Company Number: CN-PRA-000198

PATIENT
  Age: 21 Year

DRUGS (2)
  1. METHYLPREDNISOLONE [Suspect]
     Active Substance: METHYLPREDNISOLONE
     Indication: Inflammatory bowel disease
     Route: 065
  2. MESALAMINE [Suspect]
     Active Substance: MESALAMINE
     Indication: Inflammatory bowel disease
     Route: 065

REACTIONS (6)
  - Drug ineffective [Unknown]
  - Haematochezia [Unknown]
  - Haemoglobin decreased [Unknown]
  - Shock [Unknown]
  - White blood cell count increased [Unknown]
  - Product use in unapproved indication [Unknown]
